FAERS Safety Report 23622320 (Version 1)
Quarter: 2024Q1

REPORT INFORMATION
  Report Type: Spontaneous
  Country: AR (occurrence: AR)
  Receive Date: 20240312
  Receipt Date: 20240312
  Transmission Date: 20240410
  Serious: No
  Sender: FDA-Public Use
  Company Number: AR-PFIZER INC-PV202400022636

PATIENT
  Age: 6 Year
  Sex: Male

DRUGS (1)
  1. GENOTROPIN [Suspect]
     Active Substance: SOMATROPIN
     Indication: Foetal growth restriction
     Dosage: 1-1.4MG,7X/WEEK
     Dates: start: 20240105

REACTIONS (4)
  - Vomiting [Unknown]
  - Tooth loss [Unknown]
  - Otorrhoea [Unknown]
  - Device use error [Unknown]

NARRATIVE: CASE EVENT DATE: 20240101
